FAERS Safety Report 24818369 (Version 2)
Quarter: 2025Q1

REPORT INFORMATION
  Report Type: Spontaneous
  Country: CN (occurrence: CN)
  Receive Date: 20250108
  Receipt Date: 20250120
  Transmission Date: 20250408
  Serious: Yes (Other)
  Sender: ACCORD
  Company Number: CN-Accord-462929

PATIENT
  Age: 48 Year
  Sex: Male

DRUGS (28)
  1. FLUOROURACIL [Suspect]
     Active Substance: FLUOROURACIL
     Indication: DNA mismatch repair protein gene mutation
     Dates: start: 202211, end: 2022
  2. GEMCITABINE [Suspect]
     Active Substance: GEMCITABINE
     Indication: DNA mismatch repair protein gene mutation
     Dosage: ON DAYS 1 AND 8, ADMINISTERED IN A 21-DAY CYCLE
     Dates: start: 202211, end: 202305
  3. OXALIPLATIN [Suspect]
     Active Substance: OXALIPLATIN
     Indication: DNA mismatch repair protein gene mutation
     Dates: start: 202211, end: 2022
  4. BEVACIZUMAB [Suspect]
     Active Substance: BEVACIZUMAB
     Indication: DNA mismatch repair protein gene mutation
     Dates: start: 202211, end: 202305
  5. EPIRUBICIN [Suspect]
     Active Substance: EPIRUBICIN
     Indication: DNA mismatch repair protein gene mutation
     Dates: start: 202211, end: 2022
  6. PACLITAXEL [Suspect]
     Active Substance: PACLITAXEL
     Indication: DNA mismatch repair protein gene mutation
     Dosage: ON DAYS 1 AND 8, ADMINISTERED IN A 21-DAY CYCLE
     Dates: start: 202211, end: 202305
  7. SINTILIMAB [Suspect]
     Active Substance: SINTILIMAB
     Indication: DNA mismatch repair protein gene mutation
     Dates: start: 202211, end: 202305
  8. FLUOROURACIL [Suspect]
     Active Substance: FLUOROURACIL
     Indication: Adenosquamous cell carcinoma
     Dates: start: 202211, end: 2022
  9. FLUOROURACIL [Suspect]
     Active Substance: FLUOROURACIL
     Indication: Pancreatic carcinoma
     Dates: start: 202211, end: 2022
  10. FLUOROURACIL [Suspect]
     Active Substance: FLUOROURACIL
     Indication: Metastases to liver
     Dates: start: 202211, end: 2022
  11. GEMCITABINE [Suspect]
     Active Substance: GEMCITABINE
     Indication: Pancreatic carcinoma
     Dosage: ON DAYS 1 AND 8, ADMINISTERED IN A 21-DAY CYCLE
     Dates: start: 202211, end: 202305
  12. GEMCITABINE [Suspect]
     Active Substance: GEMCITABINE
     Indication: Adenosquamous cell carcinoma
     Dosage: ON DAYS 1 AND 8, ADMINISTERED IN A 21-DAY CYCLE
     Dates: start: 202211, end: 202305
  13. GEMCITABINE [Suspect]
     Active Substance: GEMCITABINE
     Indication: Metastases to liver
     Dosage: ON DAYS 1 AND 8, ADMINISTERED IN A 21-DAY CYCLE
     Dates: start: 202211, end: 202305
  14. OXALIPLATIN [Suspect]
     Active Substance: OXALIPLATIN
     Indication: Pancreatic carcinoma
     Dates: start: 202211, end: 2022
  15. OXALIPLATIN [Suspect]
     Active Substance: OXALIPLATIN
     Indication: Adenosquamous cell carcinoma
     Dates: start: 202211, end: 2022
  16. OXALIPLATIN [Suspect]
     Active Substance: OXALIPLATIN
     Indication: Metastases to liver
     Dates: start: 202211, end: 2022
  17. BEVACIZUMAB [Suspect]
     Active Substance: BEVACIZUMAB
     Indication: Pancreatic carcinoma
     Dates: start: 202211, end: 202305
  18. BEVACIZUMAB [Suspect]
     Active Substance: BEVACIZUMAB
     Indication: Adenosquamous cell carcinoma
     Dates: start: 202211, end: 202305
  19. BEVACIZUMAB [Suspect]
     Active Substance: BEVACIZUMAB
     Indication: Metastases to liver
     Dates: start: 202211, end: 202305
  20. EPIRUBICIN [Suspect]
     Active Substance: EPIRUBICIN
     Indication: Pancreatic carcinoma
     Dates: start: 202211, end: 2022
  21. EPIRUBICIN [Suspect]
     Active Substance: EPIRUBICIN
     Indication: Adenosquamous cell carcinoma
     Dates: start: 202211, end: 2022
  22. EPIRUBICIN [Suspect]
     Active Substance: EPIRUBICIN
     Indication: Metastases to liver
     Dates: start: 202211, end: 2022
  23. PACLITAXEL [Suspect]
     Active Substance: PACLITAXEL
     Indication: Pancreatic carcinoma
     Dosage: ON DAYS 1 AND 8, ADMINISTERED IN A 21-DAY CYCLE
     Dates: start: 202211, end: 202305
  24. PACLITAXEL [Suspect]
     Active Substance: PACLITAXEL
     Indication: Adenosquamous cell carcinoma
     Dosage: ON DAYS 1 AND 8, ADMINISTERED IN A 21-DAY CYCLE
     Dates: start: 202211, end: 202305
  25. PACLITAXEL [Suspect]
     Active Substance: PACLITAXEL
     Indication: Metastases to liver
     Dosage: ON DAYS 1 AND 8, ADMINISTERED IN A 21-DAY CYCLE
     Dates: start: 202211, end: 202305
  26. SINTILIMAB [Suspect]
     Active Substance: SINTILIMAB
     Indication: Pancreatic carcinoma
     Dates: start: 202211, end: 202305
  27. SINTILIMAB [Suspect]
     Active Substance: SINTILIMAB
     Indication: Adenosquamous cell carcinoma
     Dates: start: 202211, end: 202305
  28. SINTILIMAB [Suspect]
     Active Substance: SINTILIMAB
     Indication: Metastases to liver
     Dates: start: 202211, end: 202305

REACTIONS (3)
  - Nausea [Recovered/Resolved]
  - Vomiting [Recovered/Resolved]
  - Leukopenia [Recovered/Resolved]
